FAERS Safety Report 7589069-3 (Version None)
Quarter: 2011Q3

REPORT INFORMATION
  Report Type: 
  Country: None (occurrence: None)
  Receive Date: 20110705
  Receipt Date: 20110601
  Transmission Date: 20111222
  Serious: Yes (Other)
  Sender: FDA-Public Use
  Company Number: US-BAYER-2011-015850

PATIENT
  Age: 18 Year
  Sex: Female

DRUGS (3)
  1. FLUTICASONE PROPIONATE [Concomitant]
     Dosage: UNK
     Dates: start: 20080818
  2. YAZ [Suspect]
     Indication: PRODUCT USED FOR UNKNOWN INDICATION
     Dosage: UNK
     Route: 048
     Dates: start: 20080101, end: 20081201
  3. YASMIN [Suspect]
     Indication: PRODUCT USED FOR UNKNOWN INDICATION
     Dosage: UNK
     Route: 048
     Dates: start: 20080101, end: 20081201

REACTIONS (8)
  - CHOLECYSTITIS ACUTE [None]
  - GALLBLADDER DISORDER [None]
  - CHOLELITHIASIS [None]
  - PAIN [None]
  - MENTAL DISORDER [None]
  - INJURY [None]
  - FEAR [None]
  - ANXIETY [None]
